FAERS Safety Report 9538684 (Version 1)
Quarter: 2013Q2

REPORT INFORMATION
  Report Type: Spontaneous
  Country: US (occurrence: None)
  Receive Date: 20130517
  Receipt Date: 20130517
  Transmission Date: 20140414
  Serious: No
  Sender: FDA-Public Use
  Company Number: 1000043421

PATIENT
  Sex: Female

DRUGS (10)
  1. VIIBRYD [Suspect]
     Indication: DEPRESSION
     Route: 048
     Dates: start: 201211, end: 201211
  2. TIZANIDINE (TIZANIDINE) (4 MILLIGRAM, TABLETS) [Suspect]
     Indication: MUSCLE RELAXANT THERAPY
     Route: 048
     Dates: start: 20130221, end: 20130312
  3. TIZANIDINE (TIZANIDINE) (4 MILLIGRAM, TABLETS) [Suspect]
     Route: 048
     Dates: start: 20130221, end: 20130312
  4. BACLOFEN (BACLOFEN( (BACLOFEN) [Concomitant]
  5. ALPRAZOLAM (ALPRAZOLAM) (ALPRAZOLAM) [Concomitant]
  6. SYNTHROID (LEVOTHYROXINE SODIUM) (LEVOTHYROXINE SODIUM) [Concomitant]
  7. HYDROCODONE (HYDROCODONE) (HYDROCODONE) [Concomitant]
  8. WARFARIN (WARFARIN) (WARFARIN) [Concomitant]
  9. HYZAAR (HYZAAR) (HYZAAR) [Concomitant]
  10. TRAZODONE (TRAZODONE) (TRAZODONE) [Concomitant]

REACTIONS (6)
  - Intervertebral disc protrusion [None]
  - Tremor [None]
  - Dizziness [None]
  - Palpitations [None]
  - Restlessness [None]
  - Paraesthesia [None]
